FAERS Safety Report 10046348 (Version 1)
Quarter: 2014Q1

REPORT INFORMATION
  Report Type: Spontaneous
  Country: US (occurrence: US)
  Receive Date: 20140331
  Receipt Date: 20140331
  Transmission Date: 20141002
  Serious: No
  Sender: FDA-Public Use
  Company Number: US-BIOGENIDEC-2014BI027315

PATIENT
  Age: 48 Year
  Sex: Female
  Weight: 92 kg

DRUGS (14)
  1. TECFIDERA [Suspect]
     Indication: MULTIPLE SCLEROSIS
     Dates: start: 20140227
  2. TECFIDERA [Suspect]
     Indication: MULTIPLE SCLEROSIS
  3. TECFIDERA [Suspect]
     Indication: MULTIPLE SCLEROSIS
  4. TECFIDERA [Suspect]
     Indication: MULTIPLE SCLEROSIS
  5. TECFIDERA [Suspect]
     Indication: MULTIPLE SCLEROSIS
  6. TECFIDERA [Suspect]
     Indication: MULTIPLE SCLEROSIS
     Route: 048
  7. BABY ASPIRIN [Concomitant]
     Indication: PREMEDICATION
  8. VIT D [Concomitant]
  9. ZANTAC [Concomitant]
  10. CALCIUM MAGAZINE ZINC [Concomitant]
  11. LORAZEPAM [Concomitant]
  12. ZOMIG [Concomitant]
  13. SUPER B COMP [Concomitant]
  14. ALBUTEROL [Concomitant]

REACTIONS (10)
  - Dizziness [Unknown]
  - Vitamin D increased [Unknown]
  - Emotional disorder [Unknown]
  - Constipation [Unknown]
  - Candida infection [Unknown]
  - Prescribed underdose [Unknown]
  - Diarrhoea [Unknown]
  - Abdominal pain [Unknown]
  - Flushing [Not Recovered/Not Resolved]
  - Gastrointestinal pain [Recovered/Resolved]
